FAERS Safety Report 5792657-8 (Version None)
Quarter: 2008Q2

REPORT INFORMATION
  Report Type: 
  Country: None (occurrence: None)
  Receive Date: 20080624
  Receipt Date: 20080612
  Transmission Date: 20081010
  Serious: Yes (Hospitalization)
  Sender: FDA-Public Use
  Company Number: 08-000893

PATIENT
  Age: 48 Year
  Sex: Male

DRUGS (4)
  1. TACLONEX [Suspect]
     Indication: PSORIASIS
     Dosage: 80 MG, TOPICAL
     Route: 061
     Dates: start: 20080513, end: 20080515
  2. HUMIRA [Suspect]
     Indication: PSORIASIS
     Dosage: SUBCUTANEOUS
     Route: 058
     Dates: start: 20080513, end: 20080515
  3. ISONIAZID [Concomitant]
  4. EPROSARTAN MESILATE (EPROSARTAN MESILATE) [Concomitant]

REACTIONS (6)
  - CONDITION AGGRAVATED [None]
  - DERMATITIS EXFOLIATIVE [None]
  - DISCOMFORT [None]
  - INFLAMMATION [None]
  - MALAISE [None]
  - PSORIASIS [None]
